FAERS Safety Report 21959303 (Version 4)
Quarter: 2023Q1

REPORT INFORMATION
  Report Type: Report from Study
  Country: CA (occurrence: CA)
  Receive Date: 20230206
  Receipt Date: 20230220
  Transmission Date: 20230418
  Serious: Yes (Hospitalization)
  Sender: FDA-Public Use
  Company Number: CA-RIGEL Pharmaceuticals, INC-2022FOS001052

PATIENT
  Sex: Female

DRUGS (1)
  1. FOSTAMATINIB DISODIUM [Suspect]
     Active Substance: FOSTAMATINIB DISODIUM
     Indication: Immune thrombocytopenia
     Dosage: 100 MG, BID
     Route: 048
     Dates: start: 20221205

REACTIONS (11)
  - Peripheral swelling [Not Recovered/Not Resolved]
  - Epistaxis [Unknown]
  - Haemoglobin decreased [Unknown]
  - Asthenia [Unknown]
  - Malaise [Unknown]
  - Contusion [Unknown]
  - Palpitations [Unknown]
  - Tachycardia [Unknown]
  - Disorientation [Unknown]
  - Fatigue [Unknown]
  - Nausea [Unknown]
